FAERS Safety Report 4753533-2 (Version None)
Quarter: 2005Q3

REPORT INFORMATION
  Report Type: 
  Country: None (occurrence: None)
  Receive Date: 20050824
  Receipt Date: 20050810
  Transmission Date: 20060218
  Serious: Yes (Other)
  Sender: FDA-Public Use
  Company Number: 230002L05ISR

PATIENT
  Age: 41 Year
  Sex: Female

DRUGS (1)
  1. REBIF [Suspect]
     Indication: RELAPSING-REMITTING MULTIPLE SCLEROSIS
     Dosage: SUBCUTANEOUS
     Route: 058

REACTIONS (5)
  - AREFLEXIA [None]
  - DEMYELINATION [None]
  - HYPOAESTHESIA [None]
  - PERONEAL NERVE PALSY [None]
  - POLYNEUROPATHY [None]
